FAERS Safety Report 7151505-4 (Version None)
Quarter: 2010Q4

REPORT INFORMATION
  Report Type: 
  Country: None (occurrence: None)
  Receive Date: 20101210
  Receipt Date: 20101201
  Transmission Date: 20110411
  Serious: Yes (Other)
  Sender: FDA-Public Use
  Company Number: US-TEVA-258425USA

PATIENT
  Age: 51 Year
  Sex: Female

DRUGS (1)
  1. CYCLOSPORINE [Suspect]
     Indication: LEUKAEMIA
     Dosage: BID
     Dates: start: 20101001, end: 20101101

REACTIONS (4)
  - DRUG EFFECT DECREASED [None]
  - DRUG LEVEL DECREASED [None]
  - LEUKAEMIA [None]
  - LYMPHOCYTE COUNT INCREASED [None]
